FAERS Safety Report 8147617 (Version 3)
Quarter: 2015Q2

REPORT INFORMATION
  Report Type: Spontaneous
  Country: FR (occurrence: FR)
  Receive Date: 20110922
  Receipt Date: 20150626
  Transmission Date: 20150821
  Serious: Yes (Hospitalization)
  Sender: FDA-Public Use
  Company Number: FR-UCBSA-041202

PATIENT
  Age: 66 Year
  Sex: Female

DRUGS (12)
  1. PRAVASTATIN [Suspect]
     Active Substance: PRAVASTATIN\PRAVASTATIN SODIUM
     Dosage: TOTAL DAILY DOSE : 20 MG
     Route: 048
     Dates: end: 20110813
  2. METFORMIN WINTHROP [Concomitant]
     Dosage: 1000 MG
  3. TARKA [Concomitant]
     Active Substance: TRANDOLAPRIL\VERAPAMIL HYDROCHLORIDE
  4. GLIMEPIRIDE WINTHROP [Concomitant]
     Dosage: 4 MG
  5. XYZAL [Suspect]
     Active Substance: LEVOCETIRIZINE DIHYDROCHLORIDE
     Dosage: TOTAL DAILY DOSE : 5 MG
     Route: 048
     Dates: start: 20110809, end: 20110813
  6. DIPROSONE [Suspect]
     Active Substance: BETAMETHASONE DIPROPIONATE
     Route: 061
     Dates: start: 20110809, end: 20110813
  7. JANUVIA [Concomitant]
     Active Substance: SITAGLIPTIN PHOSPHATE
     Dosage: 100 MG
  8. SPIRONOLACTONE ALTIZIDE WINTHROP [Suspect]
     Active Substance: ALTHIAZIDE\SPIRONOLACTONE
     Dosage: 1 TABLET; 25 MG/15 MG
     Route: 048
     Dates: start: 20110809, end: 20110813
  9. CATAPRESSAN [Concomitant]
     Active Substance: CLONIDINE
     Dosage: 0.15 MG
  10. CYTEAL [Suspect]
     Active Substance: CHLORHEXIDINE GLUCONATE\CHLOROCRESOL\HEXAMIDINE DIISETHIONATE
     Route: 061
     Dates: start: 20110809, end: 20110813
  11. NUREFLEX [Suspect]
     Active Substance: IBUPROFEN
     Dosage: 400 MG, 2X/DAY (BID)
     Route: 048
     Dates: end: 20110813
  12. KLIPAL CODEINE [Suspect]
     Active Substance: ACETAMINOPHEN\CODEINE PHOSPHATE
     Indication: PAIN IN EXTREMITY
     Dosage: 300 MG/25 MG; 1 TABLET, TID
     Route: 048
     Dates: start: 20110729, end: 20110813

REACTIONS (3)
  - Pruritus generalised [Recovered/Resolved]
  - Urticaria [Recovered/Resolved]
  - Erysipelas [Recovered/Resolved]

NARRATIVE: CASE EVENT DATE: 20110811
